FAERS Safety Report 4425188-8 (Version None)
Quarter: 2004Q3

REPORT INFORMATION
  Report Type: 
  Country: None (occurrence: None)
  Receive Date: 20040812
  Receipt Date: 20040812
  Transmission Date: 20050211
  Serious: Yes (Hospitalization)
  Sender: FDA-Public Use
  Company Number: None

PATIENT
  Age: 83 Year
  Sex: Male
  Weight: 78.7 kg

DRUGS (11)
  1. METOPROLOL [Suspect]
     Indication: ATRIAL FLUTTER
     Dosage: 50 MG BID ORAL
     Route: 048
  2. METOPROLOL [Suspect]
     Indication: HYPERTENSION
     Dosage: 50 MG BID ORAL
     Route: 048
  3. ASPIRIN [Concomitant]
  4. CODEINE LIQ [Concomitant]
  5. FOLIC ACID [Concomitant]
  6. FOSINOPRIL SODIUM [Concomitant]
  7. FUROSEMIDE [Concomitant]
  8. ISOSORBIDE DINIT [Concomitant]
  9. LOVASTATIN [Concomitant]
  10. NITROGLYCERIN [Concomitant]
  11. SERTRALINE HCL [Concomitant]

REACTIONS (2)
  - BRADYCARDIA [None]
  - SYNCOPE [None]
